FAERS Safety Report 17163441 (Version 2)
Quarter: 2020Q1

REPORT INFORMATION
  Report Type: Report from Study
  Country: US (occurrence: US)
  Receive Date: 20191217
  Receipt Date: 20200218
  Transmission Date: 20200409
  Serious: Yes (Other)
  Sender: FDA-Public Use
  Company Number: NVSC2019US071131

PATIENT
  Sex: Female

DRUGS (3)
  1. GILENYA [Suspect]
     Active Substance: FINGOLIMOD HYDROCHLORIDE
     Dosage: 0.5 MG, QOD
     Route: 048
  2. GILENYA [Suspect]
     Active Substance: FINGOLIMOD HYDROCHLORIDE
     Dosage: 0.5 MG, QD
     Route: 048
  3. GILENYA [Suspect]
     Active Substance: FINGOLIMOD HYDROCHLORIDE
     Indication: MULTIPLE SCLEROSIS
     Dosage: 0.5 MG, QD
     Route: 048
     Dates: start: 20181009

REACTIONS (14)
  - Pain [Unknown]
  - Tremor [Unknown]
  - Frustration tolerance decreased [Unknown]
  - Insomnia [Unknown]
  - Migraine [Unknown]
  - Depressed mood [Unknown]
  - Balance disorder [Unknown]
  - Headache [Unknown]
  - Multiple sclerosis relapse [Unknown]
  - Peripheral swelling [Recovering/Resolving]
  - Alopecia [Unknown]
  - Feeling abnormal [Unknown]
  - Thinking abnormal [Unknown]
  - Inappropriate schedule of product administration [Recovered/Resolved]
